FAERS Safety Report 15325674 (Version 1)
Quarter: 2018Q3

REPORT INFORMATION
  Report Type: Spontaneous
  Country: US (occurrence: US)
  Receive Date: 20180822
  Receipt Date: 20180822
  Transmission Date: 20181010
  Serious: Yes (Hospitalization)
  Sender: FDA-Public Use
  Company Number: None

PATIENT
  Age: 24 Year
  Sex: Female
  Weight: 75 kg

DRUGS (2)
  1. LODINE 300 MG [Concomitant]
     Dates: start: 20180820
  2. HALDOL [Suspect]
     Active Substance: HALOPERIDOL
     Route: 030
     Dates: start: 20180820, end: 20180820

REACTIONS (3)
  - Trismus [None]
  - Pain in jaw [None]
  - Joint stiffness [None]

NARRATIVE: CASE EVENT DATE: 20180820
